FAERS Safety Report 9209405 (Version 1)
Quarter: 2013Q2

REPORT INFORMATION
  Report Type: Spontaneous
  Country: GB (occurrence: GB)
  Receive Date: 20130404
  Receipt Date: 20130404
  Transmission Date: 20140414
  Serious: Yes (Hospitalization, Other)
  Sender: FDA-Public Use
  Company Number: GB-PFIZER INC-GBWYE559205FEB04

PATIENT
  Age: 55 Year
  Sex: Female
  Weight: 62 kg

DRUGS (8)
  1. IBUPROFEN [Suspect]
     Indication: ARTHRALGIA
     Dosage: 400 MG, 3X/DAY
     Route: 048
     Dates: start: 20031202, end: 200401
  2. IBUPROFEN [Suspect]
     Indication: MOBILITY DECREASED
  3. VIREAD [Suspect]
     Dosage: 300 MG, 1X/DAY
     Route: 048
     Dates: start: 200302, end: 200401
  4. ABACAVIR [Concomitant]
     Dosage: 600 MG, UNK
     Route: 048
     Dates: start: 200302, end: 200401
  5. FLUCONAZOLE [Concomitant]
     Dosage: 200 MG, UNK
     Route: 048
     Dates: end: 200401
  6. SEPTRIN [Concomitant]
     Dosage: 960 MG, UNK
     Route: 048
     Dates: end: 200401
  7. KALETRA [Concomitant]
     Dosage: UNK
     Route: 048
     Dates: start: 200302, end: 200401
  8. ATENOLOL [Concomitant]
     Dosage: 50 MG, UNK
     Route: 048

REACTIONS (3)
  - Renal failure acute [Recovering/Resolving]
  - Metabolic acidosis [Recovering/Resolving]
  - Renal tubular acidosis [Recovering/Resolving]
